FAERS Safety Report 14398212 (Version 2)
Quarter: 2019Q1

REPORT INFORMATION
  Report Type: Report from Study
  Country: None (occurrence: US)
  Receive Date: 20180116
  Receipt Date: 20190104
  Transmission Date: 20190417
  Serious: Yes (Hospitalization, Other)
  Sender: FDA-Public Use
  Company Number: US-ABBVIE-18K-163-2221053-00

PATIENT
  Age: 33 Year
  Sex: Male
  Weight: 90.8 kg

DRUGS (1)
  1. HUMIRA [Suspect]
     Active Substance: ADALIMUMAB
     Indication: CROHN^S DISEASE
     Route: 058
     Dates: start: 20170428, end: 20171201

REACTIONS (9)
  - Joint swelling [Recovered/Resolved]
  - Headache [Recovered/Resolved]
  - Small intestinal obstruction [Recovered/Resolved]
  - Gastrointestinal inflammation [Recovered/Resolved]
  - Dizziness [Recovered/Resolved]
  - Dyspepsia [Recovered/Resolved]
  - Fluid intake reduced [Recovered/Resolved]
  - Procedural pain [Recovered/Resolved]
  - Drug ineffective [Recovered/Resolved]

NARRATIVE: CASE EVENT DATE: 201704
